FAERS Safety Report 12161257 (Version 1)
Quarter: 2016Q1

REPORT INFORMATION
  Report Type: Spontaneous
  Country: PL (occurrence: PL)
  Receive Date: 20160308
  Receipt Date: 20160308
  Transmission Date: 20160526
  Serious: Yes (Hospitalization, Other)
  Sender: FDA-Public Use
  Company Number: PL-ABBVIE-16P-129-1560856-00

PATIENT
  Age: 69 Year
  Sex: Female
  Weight: 86 kg

DRUGS (9)
  1. EXVIERA [Suspect]
     Active Substance: DASABUVIR
     Indication: HEPATITIS C
  2. MODERIBA [Suspect]
     Active Substance: RIBAVIRIN
     Indication: HEPATIC CIRRHOSIS
     Dosage: 3-0-3
     Route: 048
     Dates: start: 20151127, end: 20160130
  3. FUROSEMID [Concomitant]
     Active Substance: FUROSEMIDE
     Indication: HEPATIC CIRRHOSIS
     Route: 048
  4. VIEKIRAX [Suspect]
     Active Substance: OMBITASVIR\PARITAPREVIR\RITONAVIR
     Indication: HEPATIC CIRRHOSIS
  5. PRINIVIL [Concomitant]
     Active Substance: LISINOPRIL
     Indication: HYPERTENSION
     Route: 048
  6. VIEKIRAX [Suspect]
     Active Substance: OMBITASVIR\PARITAPREVIR\RITONAVIR
     Indication: HEPATITIS C
     Route: 048
     Dates: start: 20151127, end: 20160130
  7. EXVIERA [Suspect]
     Active Substance: DASABUVIR
     Indication: HEPATIC CIRRHOSIS
     Dosage: 1-0-1
     Route: 048
     Dates: start: 20151127, end: 20160130
  8. MODERIBA [Suspect]
     Active Substance: RIBAVIRIN
     Indication: HEPATITIS C
  9. BISOCARD [Concomitant]
     Active Substance: BISOPROLOL
     Indication: HYPERTENSION
     Route: 048

REACTIONS (9)
  - International normalised ratio increased [Recovering/Resolving]
  - Peripheral swelling [Recovering/Resolving]
  - Hepatic failure [Recovering/Resolving]
  - Hyperbilirubinaemia [Recovering/Resolving]
  - Jaundice [Recovering/Resolving]
  - Ascites [Recovering/Resolving]
  - Blood albumin decreased [Recovering/Resolving]
  - Jaundice [Recovering/Resolving]
  - Child-Pugh-Turcotte score increased [Unknown]

NARRATIVE: CASE EVENT DATE: 20151209
